FAERS Safety Report 6371423-9 (Version None)
Quarter: 2009Q3

REPORT INFORMATION
  Report Type: 
  Country: None (occurrence: None)
  Receive Date: 20090923
  Receipt Date: 20070803
  Transmission Date: 20100115
  Serious: No
  Sender: FDA-Public Use
  Company Number: US-ASTRAZENECA-2007UW06095

PATIENT
  Age: 15657 Day
  Sex: Male
  Weight: 134.7 kg

DRUGS (16)
  1. SEROQUEL [Suspect]
     Indication: SLEEP DISORDER
     Route: 048
     Dates: start: 20030607, end: 20060302
  2. SEROQUEL [Suspect]
     Dosage: 25-100 MG
     Route: 048
     Dates: start: 20040707
  3. SEROQUEL [Suspect]
     Route: 048
     Dates: start: 20060302
  4. LEXAPRO [Concomitant]
  5. ACCUPRIL [Concomitant]
  6. LIPITOR [Concomitant]
  7. TRICOR [Concomitant]
  8. LASIX [Concomitant]
  9. SULAR [Concomitant]
  10. CARISOPRODOL [Concomitant]
  11. ALPRAZOLAM [Concomitant]
  12. HYDROCODONE BITARTRATE AND ACETAMINOPHEN [Concomitant]
  13. PLAVIX [Concomitant]
  14. LORTAB [Concomitant]
  15. METFORMIN HYDROCHLORIDE [Concomitant]
  16. AMOXICILLIN [Concomitant]

REACTIONS (2)
  - DIABETES MELLITUS [None]
  - HYPERINSULINAEMIA [None]
